FAERS Safety Report 11520108 (Version 1)
Quarter: 2015Q3

REPORT INFORMATION
  Report Type: Spontaneous
  Country: US (occurrence: None)
  Receive Date: 20150917
  Receipt Date: 20150917
  Transmission Date: 20151125
  Serious: Yes (Other)
  Sender: FDA-Public Use
  Company Number: None

PATIENT
  Age: 73 Year
  Sex: Male

DRUGS (2)
  1. TEMOZOLOMIDE 140MG TEVA [Suspect]
     Active Substance: TEMOZOLOMIDE
     Indication: RENAL CANCER
     Dosage: 160MG QD, 21DAYS ON 7 OFF PO
     Route: 048
     Dates: start: 20150806, end: 20150915
  2. TEMOZOLOMIDE 20MG TEVA [Suspect]
     Active Substance: TEMOZOLOMIDE
     Indication: RENAL CANCER
     Dosage: 160MG QD, 21DAYS ON 7 OFF PO
     Route: 048
     Dates: start: 20150806, end: 20150915

REACTIONS (1)
  - Neoplasm progression [None]

NARRATIVE: CASE EVENT DATE: 20150915
